FAERS Safety Report 10182491 (Version 1)
Quarter: 2014Q2

REPORT INFORMATION
  Report Type: Spontaneous
  Country: FR (occurrence: FR)
  Receive Date: 20140520
  Receipt Date: 20140520
  Transmission Date: 20141212
  Serious: Yes (Hospitalization, Other)
  Sender: FDA-Public Use
  Company Number: FR-JNJFOC-20140503636

PATIENT
  Sex: Male

DRUGS (15)
  1. RISPERDAL [Suspect]
     Indication: PRODUCT USED FOR UNKNOWN INDICATION
     Route: 048
     Dates: start: 20140111, end: 20140119
  2. EUCREAS [Suspect]
     Indication: PRODUCT USED FOR UNKNOWN INDICATION
     Dosage: 50MG/1000MG
     Route: 048
  3. COAPROVEL [Suspect]
     Indication: HYPERTENSION
     Dosage: 300MG/25MG
     Route: 065
     Dates: end: 20140119
  4. ANAFRANIL [Suspect]
     Indication: DEPRESSION
     Route: 048
     Dates: start: 2014, end: 20140119
  5. BENZYLTHIOURACIL [Suspect]
     Indication: HYPERTHYROIDISM
     Route: 048
  6. INEXIUM [Concomitant]
     Indication: PRODUCT USED FOR UNKNOWN INDICATION
     Route: 065
  7. APIDRA [Concomitant]
     Indication: DIABETES MELLITUS
     Dosage: 14 IU IN THE MORNING, 16 IU AT MIDDAY AND 8 IU IN THE EVENING
     Route: 058
     Dates: start: 20130903
  8. AMLOR [Concomitant]
     Indication: HYPERTENSION
     Route: 065
     Dates: start: 20140130
  9. NEO-MERCAZOLE [Concomitant]
     Indication: HYPERTHYROIDISM
     Dosage: FOR 3 MONTHS (20 MG 0.5 TAB AT MIDDAY)
     Route: 065
  10. NORSET [Concomitant]
     Indication: DEPRESSION
     Dosage: FOR 9 DAYS
     Route: 065
  11. SERESTA [Concomitant]
     Indication: PRODUCT USED FOR UNKNOWN INDICATION
     Dosage: 0.5 DOSE ONCE A DAY, LONG TERM TREATMENT
     Route: 065
     Dates: end: 20140119
  12. EUPRESSYL [Concomitant]
     Indication: HYPERTENSION
     Route: 065
     Dates: start: 20140130
  13. LANTUS [Concomitant]
     Indication: TYPE 2 DIABETES MELLITUS
     Dosage: 23 IU IN THE EVENING
     Route: 058
     Dates: start: 20130903
  14. LASILIX [Concomitant]
     Indication: PRODUCT USED FOR UNKNOWN INDICATION
     Route: 065
     Dates: start: 20140119, end: 20140122
  15. PARACETAMOL [Concomitant]
     Indication: PRODUCT USED FOR UNKNOWN INDICATION
     Dosage: IF NEEDED
     Route: 065

REACTIONS (8)
  - Renal failure acute [Recovered/Resolved]
  - Lactic acidosis [Recovered/Resolved]
  - Hyperkalaemia [Recovered/Resolved]
  - Altered state of consciousness [Unknown]
  - Hypotension [Unknown]
  - Hypothermia [Unknown]
  - Hyperglycaemia [Unknown]
  - Metabolic acidosis [Recovered/Resolved]
